FAERS Safety Report 10810826 (Version 1)
Quarter: 2015Q1

REPORT INFORMATION
  Report Type: Spontaneous
  Country: VE (occurrence: None)
  Receive Date: 20150212
  Receipt Date: 20150212
  Transmission Date: 20150721
  Serious: Yes (Other)
  Sender: FDA-Public Use
  Company Number: 2015SGN00109

PATIENT
  Age: 23 Year
  Sex: Female

DRUGS (1)
  1. ADCETRIS [Suspect]
     Active Substance: BRENTUXIMAB VEDOTIN
     Indication: PRODUCT USED FOR UNKNOWN INDICATION
     Dosage: 1.8 UNK UNK, INTRAVENOUS
     Route: 042
     Dates: start: 20140729

REACTIONS (2)
  - Malignant neoplasm progression [None]
  - Hodgkin^s disease [None]

NARRATIVE: CASE EVENT DATE: 20141229
